FAERS Safety Report 14126236 (Version 1)
Quarter: 2017Q4

REPORT INFORMATION
  Report Type: Spontaneous
  Country: US (occurrence: US)
  Receive Date: 20171025
  Receipt Date: 20171025
  Transmission Date: 20180321
  Serious: No
  Sender: FDA-Public Use
  Company Number: US-BAUSCH-BL-2016-022505

PATIENT
  Age: 81 Year
  Sex: Female
  Weight: 59.02 kg

DRUGS (2)
  1. ATIVAN [Suspect]
     Active Substance: LORAZEPAM
     Indication: ANXIETY
     Dosage: ONE TABLET ORALLY WEEKLY AS NEEDED
     Route: 048
     Dates: start: 2006
  2. ATIVAN [Suspect]
     Active Substance: LORAZEPAM
     Indication: BALANCE DISORDER

REACTIONS (1)
  - Somnolence [Not Recovered/Not Resolved]

NARRATIVE: CASE EVENT DATE: 201609
